FAERS Safety Report 16269425 (Version 2)
Quarter: 2019Q2

REPORT INFORMATION
  Report Type: Report from Study
  Country: JP (occurrence: JP)
  Receive Date: 20190503
  Receipt Date: 20190619
  Transmission Date: 20190711
  Serious: Yes (Other)
  Sender: FDA-Public Use
  Company Number: JP-GLAXOSMITHKLINE-JP2019GSK077079

PATIENT
  Age: 85 Year
  Sex: Male

DRUGS (2)
  1. BETA BLOCKER [Concomitant]
     Active Substance: UNSPECIFIED INGREDIENT
  2. OMEGA-3-ACID ETHYL ESTERS. [Suspect]
     Active Substance: OMEGA-3-ACID ETHYL ESTERS
     Indication: HYPERLIPIDAEMIA
     Dosage: 2 G, QD
     Route: 048
     Dates: start: 20151128, end: 20170325

REACTIONS (3)
  - Atrial fibrillation [Unknown]
  - Palpitations [Unknown]
  - Chest pain [Unknown]

NARRATIVE: CASE EVENT DATE: 20170325
